FAERS Safety Report 7035419-6 (Version None)
Quarter: 2010Q4

REPORT INFORMATION
  Report Type: 
  Country: None (occurrence: None)
  Receive Date: 20101008
  Receipt Date: 20100930
  Transmission Date: 20110411
  Serious: Yes (Hospitalization)
  Sender: FDA-Public Use
  Company Number: FR-PFIZER INC-2010103721

PATIENT
  Age: 66 Year
  Sex: Male

DRUGS (6)
  1. PRADAXA [Suspect]
     Indication: THROMBOSIS PROPHYLAXIS
     Dosage: 2 DF PER DAY
     Route: 048
     Dates: start: 20091201, end: 20091208
  2. FUMAFER [Concomitant]
     Dosage: 3 DF PER DAY
     Route: 048
  3. IXPRIM [Concomitant]
     Indication: PAIN
     Dosage: 6 DF MAX PER DAY
     Route: 048
     Dates: start: 20091201
  4. KARDEGIC [Concomitant]
     Indication: CARDIOVASCULAR EVENT PROPHYLAXIS
     Dosage: UNK
     Route: 048
  5. DILTIAZEM HCL [Concomitant]
     Dosage: UNK
     Route: 048
  6. EZETROL [Concomitant]
     Indication: HYPERCHOLESTEROLAEMIA
     Dosage: 10 MG, 1X/DAY
     Route: 048

REACTIONS (1)
  - ACTIVATED PARTIAL THROMBOPLASTIN TIME PROLONGED [None]
